FAERS Safety Report 13366943 (Version 2)
Quarter: 2017Q1

REPORT INFORMATION
  Report Type: Spontaneous
  Country: FR (occurrence: FR)
  Receive Date: 20170324
  Receipt Date: 20170331
  Transmission Date: 20170429
  Serious: Yes (Hospitalization, Other)
  Sender: FDA-Public Use
  Company Number: FR-BRISTOL-MYERS SQUIBB COMPANY-BMS-2017-024374

PATIENT
  Age: 62 Year
  Sex: Male

DRUGS (5)
  1. LYSANXIA [Concomitant]
     Active Substance: PRAZEPAM
     Indication: PRODUCT USED FOR UNKNOWN INDICATION
     Route: 065
  2. LYRICA [Concomitant]
     Active Substance: PREGABALIN
     Indication: PRODUCT USED FOR UNKNOWN INDICATION
     Route: 065
  3. MONO TILDIEM [Concomitant]
     Active Substance: DILTIAZEM HYDROCHLORIDE
     Indication: PRODUCT USED FOR UNKNOWN INDICATION
     Route: 065
  4. OPDIVO [Suspect]
     Active Substance: NIVOLUMAB
     Indication: SQUAMOUS CELL CARCINOMA OF LUNG
     Dosage: 10 MG/ML, UNK
     Route: 042
     Dates: start: 20170117, end: 20170209
  5. PAMIDRONATE [Suspect]
     Active Substance: PAMIDRONATE DISODIUM
     Indication: PATHOLOGICAL FRACTURE
     Dosage: UNK
     Route: 065
     Dates: start: 20170105, end: 20170205

REACTIONS (2)
  - Stevens-Johnson syndrome [Recovering/Resolving]
  - Radiation skin injury [Recovering/Resolving]

NARRATIVE: CASE EVENT DATE: 20170215
